FAERS Safety Report 13693782 (Version 1)
Quarter: 2017Q2

REPORT INFORMATION
  Report Type: Report from Study
  Country: US (occurrence: US)
  Receive Date: 20170627
  Receipt Date: 20170627
  Transmission Date: 20170830
  Serious: Yes (Hospitalization, Other)
  Sender: FDA-Public Use
  Company Number: US-GILEAD-2017-0280106

PATIENT
  Age: 59 Year
  Sex: Male

DRUGS (10)
  1. FUROSEMIDE. [Concomitant]
     Active Substance: FUROSEMIDE
  2. METFORMIN [Concomitant]
     Active Substance: METFORMIN HYDROCHLORIDE
  3. AMBRISENTAN [Suspect]
     Active Substance: AMBRISENTAN
     Indication: PULMONARY ARTERIAL HYPERTENSION
     Dosage: 10 MG, QD
     Route: 065
     Dates: start: 20170224
  4. SIMVASTATIN. [Concomitant]
     Active Substance: SIMVASTATIN
  5. ADCIRCA [Concomitant]
     Active Substance: TADALAFIL
  6. METOPROLOL SUCCINATE. [Concomitant]
     Active Substance: METOPROLOL SUCCINATE
  7. CARBOPLATIN. [Concomitant]
     Active Substance: CARBOPLATIN
  8. ALIMTA [Concomitant]
     Active Substance: PEMETREXED DISODIUM
  9. ZOMETA [Concomitant]
     Active Substance: ZOLEDRONIC ACID
  10. TAGRISSO [Concomitant]
     Active Substance: OSIMERTINIB

REACTIONS (3)
  - Transfusion [Unknown]
  - Gastrointestinal haemorrhage [Unknown]
  - Dehydration [Unknown]
